FAERS Safety Report 16985819 (Version 1)
Quarter: 2019Q4

REPORT INFORMATION
  Report Type: Spontaneous
  Country: GB (occurrence: GB)
  Receive Date: 20191101
  Receipt Date: 20191101
  Transmission Date: 20200122
  Serious: Yes (Other)
  Sender: FDA-Public Use
  Company Number: GB-MYLANLABS-2019M1103671

PATIENT
  Age: 26 Year
  Sex: Female

DRUGS (3)
  1. MESALAZINE [Concomitant]
     Active Substance: MESALAMINE
     Dosage: LONG-TERM
  2. PREDNISOLONE. [Concomitant]
     Active Substance: PREDNISOLONE
     Dosage: LONG-TERM
  3. NORTRIPTYLINE [Suspect]
     Active Substance: NORTRIPTYLINE
     Indication: PAIN
     Dosage: UNK
     Route: 048
     Dates: start: 20180705

REACTIONS (2)
  - Skin striae [Not Recovered/Not Resolved]
  - Skin exfoliation [Unknown]
